FAERS Safety Report 15811864 (Version 1)
Quarter: 2019Q1

REPORT INFORMATION
  Report Type: Spontaneous
  Country: DE (occurrence: DE)
  Receive Date: 20190111
  Receipt Date: 20190111
  Transmission Date: 20190417
  Serious: Yes (Other)
  Sender: FDA-Public Use
  Company Number: PHHY2019DE002521

PATIENT
  Age: 65 Year
  Sex: Female
  Weight: 61 kg

DRUGS (10)
  1. AKYNZEO [Suspect]
     Active Substance: NETUPITANT\PALONOSETRON HYDROCHLORIDE
     Indication: PRODUCT USED FOR UNKNOWN INDICATION
     Dosage: UNK (RECEIVED AFTER 27 HOURS OF CHEMOTHERAPY)
     Route: 065
  2. UROMITEXAN [Suspect]
     Active Substance: MESNA
     Indication: PRODUCT USED FOR UNKNOWN INDICATION
     Dosage: 400 MG, UNK
     Route: 042
  3. EPIRUBICIN [Suspect]
     Active Substance: EPIRUBICIN
     Indication: BREAST CANCER
     Dosage: 158 MG, CYCLIC (FOUR CYCLES, 75MG/QM KOF, INFUSION TIME OF 1.5 HOURS)
     Route: 042
     Dates: start: 20180928
  4. ENDOXAN [Suspect]
     Active Substance: CYCLOPHOSPHAMIDE
     Indication: BREAST CANCER
     Dosage: 1053 MG, CYCLIC (FOUR CYCLES, 500 MG/QM KOF, INFUSION TIME OF 1.5 HOURS)
     Route: 042
     Dates: start: 20180928
  5. DEXAMETHASONE. [Suspect]
     Active Substance: DEXAMETHASONE
     Indication: PRODUCT USED FOR UNKNOWN INDICATION
     Dosage: 16 MG, UNK
     Route: 042
  6. PANTOPRAZOL [Suspect]
     Active Substance: PANTOPRAZOLE SODIUM
     Indication: PRODUCT USED FOR UNKNOWN INDICATION
     Dosage: UNK (RECEIVED BEFORE CHEMOTHERAPY)
     Route: 065
  7. NEULASTA [Suspect]
     Active Substance: PEGFILGRASTIM
     Indication: PRODUCT USED FOR UNKNOWN INDICATION
     Dosage: UNK (RECEIVED AFTER 27 HOURS OF CHEMOTHERAPY)
     Route: 058
  8. UROMITEXAN [Suspect]
     Active Substance: MESNA
     Indication: PRODUCT USED FOR UNKNOWN INDICATION
     Dosage: 2 DF, QD (4 AND 8 HOURS AFTER CHEMOTHERAPY)
     Route: 065
     Dates: start: 201809
  9. ENDOXAN [Suspect]
     Active Substance: CYCLOPHOSPHAMIDE
     Dosage: 1053 MG, CYCLIC (FOUR CYCLES, 500 MG/QM KOF, INFUSION TIME OF 1.5 HOURS)
     Route: 042
     Dates: start: 20181130
  10. EPIRUBICIN [Suspect]
     Active Substance: EPIRUBICIN
     Dosage: 158 MG, CYCLIC (FOUR CYCLES, 75MG/QM KOF, INFUSION TIME OF 1.5 HOURS)
     Route: 042
     Dates: start: 20181130

REACTIONS (16)
  - Mucosal inflammation [Unknown]
  - Bone pain [Unknown]
  - Fatigue [Unknown]
  - Decreased appetite [Unknown]
  - Abdominal discomfort [Not Recovered/Not Resolved]
  - Dyspnoea [Unknown]
  - Nausea [Unknown]
  - Hypotension [Unknown]
  - Fluid intake reduced [Unknown]
  - Weight decreased [Unknown]
  - Mobility decreased [Unknown]
  - Tachycardia [Unknown]
  - Mental disorder [Unknown]
  - Dysgeusia [Unknown]
  - Cardiovascular disorder [Unknown]
  - Asthenia [Unknown]
